FAERS Safety Report 6284775-5 (Version None)
Quarter: 2009Q3

REPORT INFORMATION
  Report Type: 
  Country: None (occurrence: None)
  Receive Date: 20090727
  Receipt Date: 20090722
  Transmission Date: 20100115
  Serious: Yes (Death, Hospitalization)
  Sender: FDA-Public Use
  Company Number: PHHY2009JP30544

PATIENT
  Sex: Male

DRUGS (3)
  1. DIOVAN [Suspect]
     Dosage: 40 MG, QD
     Route: 048
     Dates: start: 20080530, end: 20080904
  2. BASEN [Concomitant]
     Dosage: 0.6 MG
     Route: 048
     Dates: start: 20030425, end: 20080922
  3. EUGLUCON [Concomitant]
     Dosage: 1.25 MG
     Route: 048
     Dates: start: 20030806, end: 20080922

REACTIONS (3)
  - BLOOD CHOLESTEROL INCREASED [None]
  - BLOOD GLUCOSE INCREASED [None]
  - CEREBRAL INFARCTION [None]
